FAERS Safety Report 8097962 (Version 7)
Quarter: 2013Q2

REPORT INFORMATION
  Report Type: Spontaneous
  Country: US (occurrence: US)
  Receive Date: 20110819
  Receipt Date: 20130520
  Transmission Date: 20140414
  Serious: Yes (Life-Threatening, Congenital Anomaly)
  Sender: FDA-Public Use
  Company Number: US-JNJFOC-20110805772

PATIENT
  Sex: Male

DRUGS (3)
  1. TOPAMAX [Suspect]
     Indication: FOETAL EXPOSURE DURING PREGNANCY
     Route: 064
     Dates: start: 2007, end: 20080728
  2. PRENATAL VITAMIN [Concomitant]
     Indication: FOETAL EXPOSURE DURING PREGNANCY
     Route: 064
  3. FOLIC ACID [Concomitant]
     Indication: FOETAL EXPOSURE DURING PREGNANCY
     Route: 064

REACTIONS (4)
  - Congenital anomaly [Unknown]
  - Cleft lip and palate [Recovering/Resolving]
  - Emotional distress [Unknown]
  - Emotional disorder [Unknown]
